FAERS Safety Report 4302045-9 (Version None)
Quarter: 2004Q1

REPORT INFORMATION
  Report Type: 
  Country: None (occurrence: None)
  Receive Date: 20040223
  Receipt Date: 20040203
  Transmission Date: 20041129
  Serious: Yes (Hospitalization)
  Sender: FDA-Public Use
  Company Number: JP-ROCHE-358011

PATIENT
  Age: 26 Year
  Sex: Male

DRUGS (4)
  1. TAMIFLU [Suspect]
     Route: 048
     Dates: start: 20040127, end: 20040129
  2. IBUPROFEN [Concomitant]
     Indication: ANTIPYRESIS
     Route: 048
     Dates: start: 20040127, end: 20040201
  3. UNASYN [Concomitant]
  4. MEROPEN [Concomitant]

REACTIONS (4)
  - ENANTHEMA [None]
  - ERYTHEMA [None]
  - RASH [None]
  - RENAL IMPAIRMENT [None]
